FAERS Safety Report 24803459 (Version 3)
Quarter: 2025Q1

REPORT INFORMATION
  Report Type: Report from Study
  Country: US (occurrence: US)
  Receive Date: 20250103
  Receipt Date: 20250319
  Transmission Date: 20250409
  Serious: Yes (Hospitalization, Other)
  Sender: SERVIER
  Company Number: US-SERVIER-S24017491

PATIENT

DRUGS (9)
  1. CALASPARGASE PEGOL [Suspect]
     Active Substance: CALASPARGASE PEGOL
     Indication: B-cell type acute leukaemia
     Route: 042
     Dates: start: 20241124, end: 20241124
  2. VENETOCLAX [Suspect]
     Active Substance: VENETOCLAX
     Indication: B-cell type acute leukaemia
     Route: 065
     Dates: start: 20241122, end: 20241122
  3. VENETOCLAX [Suspect]
     Active Substance: VENETOCLAX
     Route: 048
     Dates: start: 20241123, end: 20241123
  4. VENETOCLAX [Suspect]
     Active Substance: VENETOCLAX
     Route: 048
     Dates: start: 20241124, end: 20241214
  5. DEXAMETHASONE [Suspect]
     Active Substance: DEXAMETHASONE
     Indication: B-cell type acute leukaemia
     Dosage: 4.8 MG, QD
     Route: 048
     Dates: start: 20241122, end: 20241220
  6. VINCRISTINE [Suspect]
     Active Substance: VINCRISTINE
     Indication: B-cell type acute leukaemia
     Dosage: 2 MG, EVERY 1 WEEK
     Route: 042
     Dates: start: 20241122, end: 20241213
  7. DOXORUBICIN [Suspect]
     Active Substance: DOXORUBICIN
     Indication: B-cell type acute leukaemia
     Dosage: 50 MG, DAYS 1-2
     Route: 042
     Dates: start: 20241122, end: 20241123
  8. DEXRAZOXANE [Suspect]
     Active Substance: DEXRAZOXANE
     Indication: B-cell type acute leukaemia
     Dosage: 500 MG, DAYS 1-2
     Route: 042
     Dates: start: 20241122, end: 20241123
  9. MICAFUNGIN [Concomitant]
     Active Substance: MICAFUNGIN SODIUM
     Indication: Prophylaxis
     Dosage: 50 MG, QD
     Route: 042
     Dates: start: 202411

REACTIONS (4)
  - Pneumonia fungal [Recovered/Resolved]
  - Sepsis [Recovered/Resolved]
  - Neutropenia [Recovered/Resolved]
  - Tumour lysis syndrome [Recovered/Resolved with Sequelae]

NARRATIVE: CASE EVENT DATE: 20241122
